FAERS Safety Report 21057941 (Version 1)
Quarter: 2022Q3

REPORT INFORMATION
  Report Type: Spontaneous
  Country: US (occurrence: None)
  Receive Date: 20220708
  Receipt Date: 20220708
  Transmission Date: 20221027
  Serious: Yes (Disabling)
  Sender: FDA-Public Use
  Company Number: None

PATIENT
  Age: 54 Year
  Sex: Female
  Weight: 56.25 kg

DRUGS (9)
  1. PAXLOVID [Suspect]
     Active Substance: NIRMATRELVIR\RITONAVIR
     Indication: SARS-CoV-2 test positive
     Dosage: OTHER FREQUENCY : AS DIRECTED ON BOX;?
     Dates: start: 20220707, end: 20220707
  2. BOTOX [Concomitant]
     Active Substance: ONABOTULINUMTOXINA
  3. VALTREX [Concomitant]
     Active Substance: VALACYCLOVIR HYDROCHLORIDE
  4. NEXIUM [Concomitant]
     Active Substance: ESOMEPRAZOLE MAGNESIUM
  5. IBUPROFEN [Concomitant]
     Active Substance: IBUPROFEN
  6. Rescue inhaler as needed for asthma [Concomitant]
  7. TYLENOL [Concomitant]
     Active Substance: ACETAMINOPHEN
  8. Daily vitamin [Concomitant]
  9. BIOTIN [Concomitant]
     Active Substance: BIOTIN

REACTIONS (4)
  - Dysgeusia [None]
  - Nausea [None]
  - Palpitations [None]
  - Insomnia [None]

NARRATIVE: CASE EVENT DATE: 20220707
